FAERS Safety Report 12219401 (Version 1)
Quarter: 2016Q1

REPORT INFORMATION
  Report Type: Spontaneous
  Country: BR (occurrence: BR)
  Receive Date: 20160329
  Receipt Date: 20160329
  Transmission Date: 20160526
  Serious: Yes (Death, Hospitalization)
  Sender: FDA-Public Use
  Company Number: BR-ALLERGAN-1651805US

PATIENT
  Age: 12 Year
  Sex: Female

DRUGS (1)
  1. DAPSONE UNK [Suspect]
     Active Substance: DAPSONE
     Indication: LEPROSY
     Dosage: UNK, UNKNOWN
     Route: 065

REACTIONS (11)
  - Face oedema [Unknown]
  - Rash morbilliform [Unknown]
  - Lymphocytosis [Unknown]
  - Acute hepatic failure [Fatal]
  - Coagulopathy [Fatal]
  - Sepsis [Fatal]
  - Rash erythematous [Unknown]
  - Pyrexia [Unknown]
  - Drug reaction with eosinophilia and systemic symptoms [Fatal]
  - Rash [Unknown]
  - Off label use [Unknown]
